FAERS Safety Report 6665810-9 (Version None)
Quarter: 2010Q2

REPORT INFORMATION
  Report Type: 
  Country: None (occurrence: None)
  Receive Date: 20100402
  Receipt Date: 20100319
  Transmission Date: 20101027
  Serious: Yes (Other)
  Sender: FDA-Public Use
  Company Number: IS-PFIZER INC-2010036055

PATIENT
  Age: 50 Year
  Sex: Female

DRUGS (2)
  1. LYRICA [Suspect]
     Dosage: 900 MG, 1X/DAY
  2. LYRICA [Suspect]
     Dosage: 900 MG, UNK

REACTIONS (1)
  - INTENTIONAL DRUG MISUSE [None]
